FAERS Safety Report 8552842-9 (Version None)
Quarter: 2012Q3

REPORT INFORMATION
  Report Type: 
  Country: None (occurrence: None)
  Receive Date: 20120731
  Receipt Date: 20120726
  Transmission Date: 20120928
  Serious: Yes (Other)
  Sender: FDA-Public Use
  Company Number: PHHY2012BR065157

PATIENT
  Sex: Female

DRUGS (1)
  1. AMLODOPINE BESYLATE AND VALSARTAN [Suspect]
     Indication: HYPERTENSION
     Dosage: 1 TABLET (320/10 MG) DAILY (IN THE MORNING)

REACTIONS (3)
  - UTERINE HAEMORRHAGE [None]
  - UTERINE LEIOMYOMA [None]
  - BLOOD PRESSURE INCREASED [None]
